FAERS Safety Report 6251473-3 (Version None)
Quarter: 2009Q2

REPORT INFORMATION
  Report Type: 
  Country: None (occurrence: None)
  Receive Date: 20090630
  Receipt Date: 20090622
  Transmission Date: 20091009
  Serious: Yes (Other)
  Sender: FDA-Public Use
  Company Number: JP-BRISTOL-MYERS SQUIBB COMPANY-14683098

PATIENT
  Age: 27 Year
  Sex: Male

DRUGS (2)
  1. ABILIFY [Suspect]
     Route: 048
  2. RISPERDAL [Concomitant]
     Dosage: LIQUID DOSE WAS REDUCED TO 3 MG

REACTIONS (3)
  - INSOMNIA [None]
  - IRRITABILITY [None]
  - PERSECUTORY DELUSION [None]
